FAERS Safety Report 16866578 (Version 1)
Quarter: 2019Q3

REPORT INFORMATION
  Report Type: Spontaneous
  Country: CA (occurrence: CA)
  Receive Date: 20190930
  Receipt Date: 20190930
  Transmission Date: 20191005
  Serious: Yes (Hospitalization, Other)
  Sender: FDA-Public Use
  Company Number: CA-TEVA-2019-CA-1114459

PATIENT
  Age: 59 Year
  Sex: Male

DRUGS (10)
  1. GABAPENTIN. [Suspect]
     Active Substance: GABAPENTIN
     Indication: PAIN
     Dosage: 1800 MILLIGRAM DAILY;
     Route: 065
  2. APO-IBUPROFEN [Suspect]
     Active Substance: IBUPROFEN
     Indication: FIBROMYALGIA
     Route: 065
  3. APO-IBUPROFEN [Suspect]
     Active Substance: IBUPROFEN
     Indication: NEUROPATHY PERIPHERAL
     Route: 065
  4. FENTANYL. [Suspect]
     Active Substance: FENTANYL
     Indication: PAIN MANAGEMENT
     Route: 065
  5. NABILONE [Suspect]
     Active Substance: NABILONE
     Indication: MYALGIA
     Dosage: 3 MILLIGRAM DAILY;
     Route: 065
  6. APO-IBUPROFEN [Suspect]
     Active Substance: IBUPROFEN
     Indication: PAIN
     Route: 065
  7. APO-OXYCODONE CR [Suspect]
     Active Substance: OXYCODONE HYDROCHLORIDE
     Indication: PAIN
     Dosage: 120 MILLIGRAM DAILY;
     Route: 048
  8. APO-OXYCODONE CR [Suspect]
     Active Substance: OXYCODONE HYDROCHLORIDE
     Indication: FIBROMYALGIA
  9. HYDROMORPHONE [Suspect]
     Active Substance: HYDROMORPHONE
     Indication: PAIN MANAGEMENT
     Route: 048
  10. APO-OXYCODONE CR [Suspect]
     Active Substance: OXYCODONE HYDROCHLORIDE
     Indication: NEUROPATHY PERIPHERAL
     Route: 065

REACTIONS (7)
  - Haematemesis [Recovered/Resolved]
  - Drug ineffective [Recovered/Resolved]
  - Drug use disorder [Recovered/Resolved]
  - Withdrawal syndrome [Recovered/Resolved]
  - Hyperaesthesia [Recovered/Resolved]
  - Product use in unapproved indication [Recovered/Resolved]
  - Duodenal ulcer haemorrhage [Recovered/Resolved]
